FAERS Safety Report 7359903-0 (Version None)
Quarter: 2011Q1

REPORT INFORMATION
  Report Type: 
  Country: None (occurrence: None)
  Receive Date: 20110317
  Receipt Date: 20110311
  Transmission Date: 20110831
  Serious: Yes (Hospitalization)
  Sender: FDA-Public Use
  Company Number: US-GILEAD-2010-0032342

PATIENT
  Sex: Female

DRUGS (12)
  1. NEXIUM [Concomitant]
  2. CALCIUM [Concomitant]
  3. REVATIO [Concomitant]
  4. FUROSEMIDE [Concomitant]
  5. LEVOTHYROXINE SODIUM [Concomitant]
  6. VITAMIN D [Concomitant]
  7. SIMVASTATIN [Concomitant]
  8. LETAIRIS [Suspect]
     Indication: PULMONARY HYPERTENSION
     Route: 048
     Dates: start: 20100702
  9. ASPIRIN [Concomitant]
  10. KLOR-CON [Concomitant]
  11. LUNESTA [Concomitant]
  12. GABAPENTIN [Concomitant]

REACTIONS (1)
  - HIP FRACTURE [None]
